FAERS Safety Report 6929956-X (Version None)
Quarter: 2010Q3

REPORT INFORMATION
  Report Type: 
  Country: None (occurrence: None)
  Receive Date: 20100817
  Receipt Date: 20100817
  Transmission Date: 20110219
  Serious: Yes (Life-Threatening, Disabling)
  Sender: FDA-Public Use
  Company Number: None

PATIENT
  Sex: Female
  Weight: 74.8435 kg

DRUGS (4)
  1. METFORMIN HCL [Suspect]
     Indication: DIABETES MELLITUS
     Dosage: 500 MG DAILY
  2. LISINOPRIL [Suspect]
     Indication: JOINT SWELLING
     Dosage: 10 MG DAILY
  3. ACTOS [Suspect]
  4. LASIX [Suspect]

REACTIONS (1)
  - LEGAL PROBLEM [None]
